FAERS Safety Report 17416229 (Version 1)
Quarter: 2020Q1

REPORT INFORMATION
  Report Type: Report from Study
  Country: KR (occurrence: KR)
  Receive Date: 20200213
  Receipt Date: 20200213
  Transmission Date: 20200409
  Serious: Yes (Death)
  Sender: FDA-Public Use
  Company Number: KR-JNJFOC-20200209915

PATIENT
  Sex: Male
  Weight: 80 kg

DRUGS (7)
  1. TORSEMIDE. [Concomitant]
     Active Substance: TORSEMIDE
     Dosage: 2.5 MG, QD
     Dates: start: 20190418, end: 20191228
  2. DICHLOZID [Concomitant]
     Dosage: 25 MG, QD
     Dates: end: 20191228
  3. RIVAROXABAN [Suspect]
     Active Substance: RIVAROXABAN
     Indication: ATRIAL FIBRILLATION
  4. RYTMONORM [Concomitant]
     Active Substance: PROPAFENONE
     Dosage: 2 DF, QD
     Dates: start: 20190620, end: 20191228
  5. RIVAROXABAN [Suspect]
     Active Substance: RIVAROXABAN
     Indication: THROMBOSIS PROPHYLAXIS
  6. LOTAR [Concomitant]
     Active Substance: AMLODIPINE\LOSARTAN
     Dosage: 1 DF, QD
     Dates: end: 20191228
  7. RIVAROXABAN [Suspect]
     Active Substance: RIVAROXABAN
     Indication: CEREBROVASCULAR ACCIDENT PROPHYLAXIS
     Dosage: 15 MG, QD
     Route: 048
     Dates: start: 20190619, end: 20191228

REACTIONS (1)
  - Cerebral infarction [Fatal]

NARRATIVE: CASE EVENT DATE: 20191228
